FAERS Safety Report 5486580-6 (Version None)
Quarter: 2007Q4

REPORT INFORMATION
  Report Type: 
  Country: None (occurrence: None)
  Receive Date: 20071016
  Receipt Date: 20071008
  Transmission Date: 20080405
  Serious: Yes (Other)
  Sender: FDA-Public Use
  Company Number: US-BRISTOL-MYERS SQUIBB COMPANY-13933890

PATIENT
  Sex: Female

DRUGS (1)
  1. SPRYCEL [Suspect]
     Dates: start: 20070925

REACTIONS (2)
  - HAEMOGLOBIN DECREASED [None]
  - PLATELET COUNT INCREASED [None]
